FAERS Safety Report 13578746 (Version 2)
Quarter: 2017Q2

REPORT INFORMATION
  Report Type: Spontaneous
  Country: GB (occurrence: GB)
  Receive Date: 20170524
  Receipt Date: 20170611
  Transmission Date: 20170830
  Serious: Yes (Death)
  Sender: FDA-Public Use
  Company Number: GB-MYLANLABS-2017M1031103

PATIENT

DRUGS (6)
  1. PIRENZEPINE [Concomitant]
     Active Substance: PIRENZEPINE
     Indication: SALIVARY HYPERSECRETION
     Dosage: 25 MG, BID
     Route: 048
     Dates: start: 201404, end: 20170415
  2. THIAMINE. [Concomitant]
     Active Substance: THIAMINE
     Indication: ALCOHOLISM
     Dosage: 100 MG, TID
     Route: 048
     Dates: end: 20170415
  3. CLOZARIL [Suspect]
     Active Substance: CLOZAPINE
     Indication: BIPOLAR DISORDER
     Dosage: 250 MG, PM
     Route: 048
     Dates: start: 20021114, end: 20170415
  4. CLOZARIL [Suspect]
     Active Substance: CLOZAPINE
     Indication: SCHIZOPHRENIA
     Dosage: 150 MG, AM
     Route: 048
     Dates: start: 20021114, end: 20170415
  5. EPILIM [Concomitant]
     Active Substance: VALPROATE SODIUM
     Indication: EPILEPSY
     Dosage: 300 MG, BID
     Route: 048
     Dates: start: 20140624, end: 20170415
  6. CLOMIPRAMINE [Concomitant]
     Active Substance: CLOMIPRAMINE
     Indication: OBSESSIVE-COMPULSIVE DISORDER
     Dosage: 125 MG, PM
     Route: 048
     Dates: end: 20170415

REACTIONS (2)
  - Death [Fatal]
  - Product use in unapproved indication [Recovered/Resolved]

NARRATIVE: CASE EVENT DATE: 20021114
